FAERS Safety Report 12860636 (Version 1)
Quarter: 2016Q4

REPORT INFORMATION
  Report Type: Spontaneous
  Country: US (occurrence: US)
  Receive Date: 20161019
  Receipt Date: 20161019
  Transmission Date: 20170207
  Serious: No
  Sender: FDA-Public Use
  Company Number: US-TEVA-642762USA

PATIENT
  Sex: Female

DRUGS (1)
  1. AMOXICILLIN W/CLAVULANIC ACID [Suspect]
     Active Substance: AMOXICILLIN\CLAVULANIC ACID
     Dosage: 875 MG / 125 MG

REACTIONS (7)
  - Headache [Unknown]
  - Joint swelling [Unknown]
  - Abdominal pain upper [Unknown]
  - Product physical issue [Unknown]
  - Product formulation issue [Unknown]
  - Dysphagia [Unknown]
  - Product difficult to swallow [Unknown]
